FAERS Safety Report 5803058-8 (Version None)
Quarter: 2008Q3

REPORT INFORMATION
  Report Type: 
  Country: None (occurrence: None)
  Receive Date: 20080708
  Receipt Date: 20080703
  Transmission Date: 20090109
  Serious: Yes (Life-Threatening)
  Sender: FDA-Public Use
  Company Number: TH-ASTRAZENECA-2008AP05196

PATIENT
  Age: 40 Year
  Sex: Female

DRUGS (6)
  1. OMEPRAZOLE [Suspect]
     Indication: ABDOMINAL PAIN
  2. OMEPRAZOLE [Suspect]
  3. AMOXICILLIN [Suspect]
  4. NAPROXEN [Suspect]
  5. NORFLOXACIN [Concomitant]
     Indication: ABDOMINAL PAIN
  6. BUSCOPAN [Concomitant]
     Indication: ABDOMINAL PAIN

REACTIONS (3)
  - ANGIOEDEMA [None]
  - DYSPNOEA [None]
  - URTICARIA [None]
